FAERS Safety Report 24212728 (Version 5)
Quarter: 2024Q4

REPORT INFORMATION
  Report Type: Report from Study
  Country: CA (occurrence: CA)
  Receive Date: 20240815
  Receipt Date: 20241206
  Transmission Date: 20250115
  Serious: Yes (Other)
  Sender: JOHNSON AND JOHNSON
  Company Number: CA-JNJFOC-20240646350

PATIENT
  Age: 51 Year
  Sex: Female

DRUGS (4)
  1. REMICADE [Suspect]
     Active Substance: INFLIXIMAB
     Indication: Crohn^s disease
     Dosage: V6- EXPIRATION DATE: MR2027
     Route: 041
     Dates: start: 20180625, end: 20241001
  2. REMICADE [Suspect]
     Active Substance: INFLIXIMAB
     Route: 041
     Dates: start: 20180625, end: 20241001
  3. REMICADE [Suspect]
     Active Substance: INFLIXIMAB
     Route: 041
     Dates: start: 20180625, end: 20241001
  4. RENFLEXIS [Suspect]
     Active Substance: INFLIXIMAB-ABDA
     Indication: Product used for unknown indication
     Route: 065

REACTIONS (14)
  - Herpes simplex [Unknown]
  - Constipation [Unknown]
  - Psoriasis [Recovered/Resolved]
  - Sensation of foreign body [Unknown]
  - Rash [Unknown]
  - Malaise [Unknown]
  - Blister [Unknown]
  - Lip swelling [Unknown]
  - Skin ulcer [Unknown]
  - Ear infection [Recovered/Resolved]
  - Secretion discharge [Not Recovered/Not Resolved]
  - Epistaxis [Unknown]
  - Inappropriate schedule of product administration [Unknown]
  - Abdominal pain [Unknown]

NARRATIVE: CASE EVENT DATE: 20240101
